FAERS Safety Report 6637339-5 (Version None)
Quarter: 2010Q1

REPORT INFORMATION
  Report Type: 
  Country: None (occurrence: None)
  Receive Date: 20100311
  Receipt Date: 20100301
  Transmission Date: 20100710
  Serious: Yes (Other)
  Sender: FDA-Public Use
  Company Number: CV20100109

PATIENT
  Age: 71 Year
  Sex: Male

DRUGS (12)
  1. ROCURONIUM BROMIDE [Suspect]
     Indication: INDUCTION AND MAINTENANCE OF ANAESTHESIA
     Dosage: INTRAVENOUS (NOT OTHERWISE SPECIFIED)
     Route: 042
  2. PROPOFOL [Suspect]
     Indication: INDUCTION OF ANAESTHESIA
     Dosage: INTRAVENOUS (NOT OTHERWISE SPECIFIED)
     Route: 042
  3. LEVOBUPIVACAINE (LEVOBUPIVACAINE) (LEVOBUPIVACAINE) [Concomitant]
  4. CLONIDINE (CLONIDINN) (CLONIDINE) [Concomitant]
  5. CEFUROXIME (CEFUROXIME) (CEFUROXIME) [Concomitant]
  6. ALFENTANIL (ALFENTANIL) (ALFENTANIL) [Concomitant]
  7. NOREPINEPHRINE (NOREPINEPHRINE) (NOREPINEPHRINE) [Concomitant]
  8. INSULIN (INSULIN) (INSULIN) [Concomitant]
  9. RANITIDINE (RANITIDTNE) (RANITIDINE) [Concomitant]
  10. SIMVASTATIN [Concomitant]
  11. ASS (ACETYLSALICYLIC ACID) (ACETYLSALICYLIC ACID) [Concomitant]
  12. PARACETAMOL (PARACETAMOL) (PARACETAMOL) [Concomitant]

REACTIONS (9)
  - ATRIAL FIBRILLATION [None]
  - AUTONOMIC NERVOUS SYSTEM IMBALANCE [None]
  - CARDIO-RESPIRATORY ARREST [None]
  - DYSPHONIA [None]
  - GUILLAIN-BARRE SYNDROME [None]
  - HYPOXIA [None]
  - NOSOCOMIAL INFECTION [None]
  - PNEUMONIA [None]
  - RESPIRATORY DISORDER [None]
